FAERS Safety Report 6495587-1 (Version None)
Quarter: 2009Q4

REPORT INFORMATION
  Report Type: 
  Country: None (occurrence: None)
  Receive Date: 20091214
  Receipt Date: 20090717
  Transmission Date: 20100525
  Serious: No
  Sender: FDA-Public Use
  Company Number: US-BRISTOL-MYERS SQUIBB COMPANY-14707509

PATIENT
  Sex: Male

DRUGS (5)
  1. ABILIFY [Suspect]
  2. SEROQUEL [Suspect]
  3. CLOZARIL [Concomitant]
     Dates: end: 20090101
  4. METFORMIN [Concomitant]
     Dates: start: 20090101, end: 20090101
  5. GLYBURIDE [Concomitant]
     Dates: start: 20090101, end: 20090101

REACTIONS (2)
  - BLOOD GLUCOSE ABNORMAL [None]
  - DRUG INEFFECTIVE [None]
